FAERS Safety Report 5592674-7 (Version None)
Quarter: 2008Q1

REPORT INFORMATION
  Report Type: 
  Country: None (occurrence: None)
  Receive Date: 20080114
  Receipt Date: 20080105
  Transmission Date: 20080703
  Serious: Yes (Other)
  Sender: FDA-Public Use
  Company Number: 2007SP022341

PATIENT
  Age: 62 Year
  Sex: Male

DRUGS (4)
  1. CLARITIN [Suspect]
     Indication: COUGH
     Dosage: 1 DF; QD; PO
     Route: 048
     Dates: start: 20071028, end: 20071029
  2. CLARITIN [Suspect]
     Indication: SNEEZING
     Dosage: 1 DF; QD; PO
     Route: 048
     Dates: start: 20071028, end: 20071029
  3. DILANTIN (CON.) [Concomitant]
  4. GABAPENTIN (CON.) [Concomitant]

REACTIONS (1)
  - CONVULSION [None]
